FAERS Safety Report 6710663-3 (Version None)
Quarter: 2010Q2

REPORT INFORMATION
  Report Type: 
  Country: None (occurrence: None)
  Receive Date: 20100504
  Receipt Date: 20100504
  Transmission Date: 20101027
  Serious: Yes (Life-Threatening, Hospitalization, Other)
  Sender: FDA-Public Use
  Company Number: None

PATIENT
  Age: 59 Year
  Sex: Female
  Weight: 75.7507 kg

DRUGS (1)
  1. AVELOX [Suspect]
     Indication: BRONCHITIS
     Dosage: 400MG ONE A DAY PO
     Route: 048
     Dates: start: 20080424, end: 20080502

REACTIONS (9)
  - ABNORMAL WEIGHT GAIN [None]
  - ASTHMA [None]
  - ATRIAL FIBRILLATION [None]
  - BLOOD DISORDER [None]
  - EXTRASYSTOLES [None]
  - GAIT DISTURBANCE [None]
  - RENAL DISORDER [None]
  - SLEEP APNOEA SYNDROME [None]
  - THINKING ABNORMAL [None]
